FAERS Safety Report 11542945 (Version 2)
Quarter: 2016Q1

REPORT INFORMATION
  Report Type: Spontaneous
  Country: US (occurrence: US)
  Receive Date: 20150923
  Receipt Date: 20160208
  Transmission Date: 20160525
  Serious: No
  Sender: FDA-Public Use
  Company Number: US-PFIZER INC-2015317527

PATIENT
  Age: 67 Year
  Sex: Male
  Weight: 59 kg

DRUGS (3)
  1. BOSULIF [Suspect]
     Active Substance: BOSUTINIB MONOHYDRATE
     Indication: CHRONIC MYELOID LEUKAEMIA
     Dosage: 500 MG, 1X/DAY
     Route: 048
     Dates: start: 20150908
  2. SARNA [Concomitant]
     Active Substance: CAMPHOR (NATURAL)\MENTHOL\PRAMOXINE HYDROCHLORIDE
     Dosage: UNK
  3. BOSULIF [Suspect]
     Active Substance: BOSUTINIB MONOHYDRATE
     Dosage: 500 MG, 1X/DAY
     Route: 048
     Dates: start: 20150909

REACTIONS (3)
  - Haemoglobin decreased [Unknown]
  - Rash [Recovered/Resolved]
  - White blood cell count decreased [Unknown]

NARRATIVE: CASE EVENT DATE: 20150911
